FAERS Safety Report 15602446 (Version 1)
Quarter: 2018Q4

REPORT INFORMATION
  Report Type: Spontaneous
  Country: US (occurrence: US)
  Receive Date: 20181109
  Receipt Date: 20181109
  Transmission Date: 20190205
  Serious: No
  Sender: FDA-Public Use
  Company Number: US-UPSHER-SMITH LABORATORIES, LLC-2018USL00127

PATIENT
  Sex: Male

DRUGS (2)
  1. JANTOVEN [Suspect]
     Active Substance: WARFARIN SODIUM
     Dosage: 6 MG, 2X/WEEK (MONDAY^S AND FRIDAY^S)
  2. JANTOVEN [Suspect]
     Active Substance: WARFARIN SODIUM
     Dosage: 5 MG, 5X/WEEK (ALL OTHER DAYS)

REACTIONS (3)
  - Expired product administered [Recovered/Resolved]
  - Blood urine present [Unknown]
  - International normalised ratio fluctuation [Unknown]
